FAERS Safety Report 10232374 (Version 1)
Quarter: 2014Q2

REPORT INFORMATION
  Report Type: Spontaneous
  Country: US (occurrence: None)
  Receive Date: 20140610
  Receipt Date: 20140610
  Transmission Date: 20141212
  Serious: No
  Sender: FDA-Public Use
  Company Number: None

PATIENT
  Age: 79 Year
  Sex: Female
  Weight: 51.71 kg

DRUGS (18)
  1. VORICONAZOLE [Suspect]
     Indication: PULMONARY MASS
     Dosage: 1 TABLET 2X A DAY, BY MOUTH
     Route: 048
     Dates: start: 20131202, end: 20140206
  2. VORICONAZOLE [Suspect]
     Indication: FUNGAL INFECTION
     Dosage: 1 TABLET 2X A DAY, BY MOUTH
     Route: 048
     Dates: start: 20131202, end: 20140206
  3. SYNTHROID [Concomitant]
  4. ESTRACE [Concomitant]
  5. BENICAR [Concomitant]
  6. NEXIUM [Concomitant]
  7. EFFEXOR [Concomitant]
  8. LOMOTIL (GENERIC) [Concomitant]
  9. LACRISERT [Concomitant]
  10. UBIQUINOL [Concomitant]
  11. VIT. C [Concomitant]
  12. CRANACTIN (CRANBERRY EXTRACT) [Concomitant]
  13. GLUCOSAMINE WITH MSM [Concomitant]
  14. CALCIUM, MAGNESIUM, + ZINC [Concomitant]
  15. ALLEGRA - GENERIC [Concomitant]
  16. VIT B12 [Concomitant]
  17. VIT D + K [Concomitant]
  18. RESVERATROL [Concomitant]

REACTIONS (3)
  - Dry eye [None]
  - Madarosis [None]
  - Constipation [None]
